FAERS Safety Report 7545384-0 (Version None)
Quarter: 2011Q2

REPORT INFORMATION
  Report Type: 
  Country: None (occurrence: None)
  Receive Date: 20110614
  Receipt Date: 20110311
  Transmission Date: 20111010
  Serious: Yes (Other)
  Sender: FDA-Public Use
  Company Number: US-BAYER-2011-020220

PATIENT
  Age: 57 Year
  Sex: Male

DRUGS (3)
  1. SORAFENIB (RAF KINASE INHIBITOR) [Suspect]
     Dosage: 200 MG, BID
     Route: 048
  2. SORAFENIB (RAF KINASE INHIBITOR) [Suspect]
     Indication: HEPATIC NEOPLASM MALIGNANT
     Dosage: 400 MG, BID
     Route: 048
     Dates: start: 20110216
  3. SORAFENIB (RAF KINASE INHIBITOR) [Suspect]
     Dosage: 200 MG, QD
     Route: 048
     Dates: start: 20110303

REACTIONS (9)
  - NAUSEA [None]
  - RASH [None]
  - SKIN EXFOLIATION [None]
  - PRURITUS [None]
  - GENERALISED OEDEMA [None]
  - ERYTHEMA [None]
  - FACE OEDEMA [None]
  - PAIN OF SKIN [None]
  - BONE PAIN [None]
